FAERS Safety Report 15878970 (Version 1)
Quarter: 2019Q1

REPORT INFORMATION
  Report Type: Spontaneous
  Country: US (occurrence: US)
  Receive Date: 20190128
  Receipt Date: 20190128
  Transmission Date: 20190417
  Serious: Yes (Hospitalization, Other)
  Sender: FDA-Public Use
  Company Number: US-APOTEX-2019AP006745

PATIENT
  Age: 48 Year
  Sex: Male

DRUGS (2)
  1. FLECAINIDE [Suspect]
     Active Substance: FLECAINIDE
     Indication: VENTRICULAR TACHYCARDIA
     Dosage: 150 MG, BID
     Route: 065
     Dates: start: 2013
  2. FLECAINIDE [Suspect]
     Active Substance: FLECAINIDE
     Dosage: 75 MG, BID
     Route: 065
     Dates: start: 2016

REACTIONS (1)
  - Device pacing issue [Recovering/Resolving]
